FAERS Safety Report 5732163-X (Version None)
Quarter: 2008Q2

REPORT INFORMATION
  Report Type: 
  Country: None (occurrence: None)
  Receive Date: 20080508
  Receipt Date: 20080428
  Transmission Date: 20081010
  Serious: Yes (Other)
  Sender: FDA-Public Use
  Company Number: BR-PFIZER INC-2007067321

PATIENT
  Sex: Female
  Weight: 64 kg

DRUGS (3)
  1. DEPO-PROVERA SUSPENSION/INJ [Suspect]
     Indication: CONTRACEPTION
     Route: 030
     Dates: start: 20070618, end: 20070618
  2. BECLOMETHASONE DIPROPIONATE [Concomitant]
     Indication: ASTHMA
  3. LISADOR [Concomitant]
     Route: 048

REACTIONS (4)
  - DYSMENORRHOEA [None]
  - FLUID RETENTION [None]
  - MENORRHAGIA [None]
  - POLYCYSTIC OVARIES [None]
